FAERS Safety Report 6089091-2 (Version None)
Quarter: 2009Q1

REPORT INFORMATION
  Report Type: 
  Country: None (occurrence: None)
  Receive Date: 20090219
  Receipt Date: 20090219
  Transmission Date: 20090719
  Serious: Yes (Other)
  Sender: FDA-Public Use
  Company Number: None

PATIENT
  Age: 48 Year
  Sex: Male
  Weight: 83.9154 kg

DRUGS (2)
  1. BUPIVACAINE HYDROCHLORIDE AND EPINEPHRINE [Suspect]
     Indication: NERVE BLOCK
     Dosage: 30 ML X ONCE 01/30/09 @ 0715
     Dates: start: 20090130
  2. MARCAINE HYDROCHLORIDE W/ EPINEPHRINE [Concomitant]

REACTIONS (2)
  - DRUG INEFFECTIVE [None]
  - THERAPEUTIC RESPONSE UNEXPECTED WITH DRUG SUBSTITUTION [None]
